FAERS Safety Report 5419410-9 (Version None)
Quarter: 2007Q3

REPORT INFORMATION
  Report Type: 
  Country: None (occurrence: None)
  Receive Date: 20070820
  Receipt Date: 20070814
  Transmission Date: 20080115
  Serious: Yes (Other)
  Sender: FDA-Public Use
  Company Number: A0671221A

PATIENT
  Age: 26 Year
  Sex: Female

DRUGS (2)
  1. WELLBUTRIN XL [Suspect]
     Indication: DEPRESSION
     Route: 048
     Dates: start: 20070101, end: 20070811
  2. COCAINE [Suspect]
     Route: 065

REACTIONS (2)
  - CONVULSION [None]
  - DRUG ABUSER [None]
